FAERS Safety Report 17322259 (Version 1)
Quarter: 2020Q1

REPORT INFORMATION
  Report Type: Spontaneous
  Country: AU (occurrence: AU)
  Receive Date: 20200127
  Receipt Date: 20200127
  Transmission Date: 20200409
  Serious: Yes (Hospitalization)
  Sender: FDA-Public Use
  Company Number: AU-B.I. PHARMACEUTICALS,INC./RIDGEFIELD-2020-BI-003409

PATIENT
  Age: 68 Year
  Sex: Female

DRUGS (1)
  1. JARDIAMET [Suspect]
     Active Substance: EMPAGLIFLOZIN\METFORMIN HYDROCHLORIDE
     Indication: PRODUCT USED FOR UNKNOWN INDICATION
     Route: 065

REACTIONS (5)
  - Weight decreased [Unknown]
  - Fatigue [Unknown]
  - Polyuria [Unknown]
  - Polydipsia [Unknown]
  - Euglycaemic diabetic ketoacidosis [Recovered/Resolved]
